FAERS Safety Report 11263778 (Version 1)
Quarter: 2015Q3

REPORT INFORMATION
  Report Type: Spontaneous
  Country: US (occurrence: US)
  Receive Date: 20150713
  Receipt Date: 20150713
  Transmission Date: 20151125
  Serious: No
  Sender: FDA-Public Use
  Company Number: US-JNJFOC-20150607061

PATIENT
  Age: 62 Year
  Sex: Female
  Weight: 74.84 kg

DRUGS (4)
  1. PARAFON FORTE [Suspect]
     Active Substance: CHLORZOXAZONE
     Indication: BACK DISORDER
     Route: 048
  2. COREG [Concomitant]
     Active Substance: CARVEDILOL
     Indication: MYOCARDIAL INFARCTION
     Route: 065
  3. ATIVAN [Concomitant]
     Active Substance: LORAZEPAM
     Indication: ANXIETY
     Route: 065
  4. PARAFON FORTE [Suspect]
     Active Substance: CHLORZOXAZONE
     Indication: BACK DISORDER
     Route: 048

REACTIONS (2)
  - General physical condition abnormal [Unknown]
  - Drug dose omission [Unknown]

NARRATIVE: CASE EVENT DATE: 20150609
